FAERS Safety Report 5177933-4 (Version None)
Quarter: 2006Q4

REPORT INFORMATION
  Report Type: 
  Country: None (occurrence: None)
  Receive Date: 20061208
  Receipt Date: 20061127
  Transmission Date: 20070319
  Serious: Yes (Hospitalization)
  Sender: FDA-Public Use
  Company Number: 2006149382

PATIENT
  Age: 70 Year
  Sex: Male

DRUGS (6)
  1. IRINOTECAN HCL [Suspect]
     Indication: PROPHYLACTIC CHEMOTHERAPY
     Dosage: 150 MG, INTRAVENOUS
     Route: 042
     Dates: start: 20051108, end: 20060829
  2. FLUOROURACIL [Suspect]
     Indication: PROPHYLACTIC CHEMOTHERAPY
     Dosage: 3250 MG
     Dates: start: 20051108, end: 20060829
  3. CALCIUM LEVOFOLINATE (CALCIUM LEVOFOLINATE) [Suspect]
     Indication: PROPHYLACTIC CHEMOTHERAPY
     Dosage: 225 MG
     Dates: start: 20051108, end: 20060829
  4. FAMOTIDINE [Concomitant]
  5. GASMOTIN (MOSAPRIDE CITRATE) [Concomitant]
  6. MAGNESIUM OXIDE (MAGNESIUM OXIDE) [Concomitant]

REACTIONS (3)
  - INTERSTITIAL LUNG DISEASE [None]
  - PALPITATIONS [None]
  - PRODUCTIVE COUGH [None]
